FAERS Safety Report 5314100-5 (Version None)
Quarter: 2007Q2

REPORT INFORMATION
  Report Type: 
  Country: None (occurrence: None)
  Receive Date: 20070501
  Receipt Date: 20070420
  Transmission Date: 20071010
  Serious: Yes (Hospitalization)
  Sender: FDA-Public Use
  Company Number: NL-PFIZER INC-2007032823

PATIENT
  Sex: Female

DRUGS (3)
  1. CELECOXIB [Suspect]
     Indication: OVARIAN CANCER
     Route: 048
  2. DOCETAXEL [Suspect]
     Indication: OVARIAN CANCER
     Dosage: TEXT:130 MG CYCLIC EVERY 3 WEEKS
  3. CARBOPLATIN [Suspect]
     Indication: OVARIAN CANCER
     Dosage: TEXT:450 MG CYCLIC EVERY 3 WEEKS

REACTIONS (1)
  - FEBRILE NEUTROPENIA [None]
